FAERS Safety Report 15190561 (Version 4)
Quarter: 2018Q4

REPORT INFORMATION
  Report Type: Spontaneous
  Country: US (occurrence: US)
  Receive Date: 20180724
  Receipt Date: 20181029
  Transmission Date: 20190204
  Serious: Yes (Death, Hospitalization, Other)
  Sender: FDA-Public Use
  Company Number: US-GLAXOSMITHKLINE-US2018GSK129159

PATIENT
  Age: 59 Year
  Sex: Male

DRUGS (1)
  1. VENTOLIN HFA [Suspect]
     Active Substance: ALBUTEROL SULFATE
     Indication: CHRONIC OBSTRUCTIVE PULMONARY DISEASE
     Dosage: UNK
     Dates: start: 2015

REACTIONS (3)
  - Heart valve replacement [Unknown]
  - Pneumonia [Unknown]
  - Intracardiac thrombus [Fatal]

NARRATIVE: CASE EVENT DATE: 20180627
